FAERS Safety Report 7114345-8 (Version None)
Quarter: 2010Q4

REPORT INFORMATION
  Report Type: 
  Country: None (occurrence: None)
  Receive Date: 20101119
  Receipt Date: 20101109
  Transmission Date: 20110411
  Serious: Yes (Other)
  Sender: FDA-Public Use
  Company Number: GB-ELI_LILLY_AND_COMPANY-GB201011002380

PATIENT
  Age: 58 Year
  Sex: Male
  Weight: 94.4 kg

DRUGS (7)
  1. BYETTA [Suspect]
     Indication: DIABETES MELLITUS
     Dosage: 10 UG, 2/D
     Route: 058
     Dates: start: 20100201, end: 20101006
  2. EZETIMIBE [Concomitant]
  3. GABAPENTIN [Concomitant]
  4. GLICLAZIDE [Concomitant]
  5. METFORMIN HCL [Concomitant]
  6. OMEPRAZOLE [Concomitant]
  7. RAMIPRIL [Concomitant]

REACTIONS (1)
  - RENAL IMPAIRMENT [None]
